FAERS Safety Report 7783691-7 (Version None)
Quarter: 2011Q3

REPORT INFORMATION
  Report Type: 
  Country: None (occurrence: None)
  Receive Date: 20110928
  Receipt Date: 20110919
  Transmission Date: 20111222
  Serious: Yes (Hospitalization, Disabling, Other)
  Sender: FDA-Public Use
  Company Number: BR-ASTRAZENECA-2011SE56733

PATIENT
  Age: 78 Year
  Sex: Female
  Weight: 87 kg

DRUGS (6)
  1. TENORETIC 100 [Suspect]
     Indication: HYPERTENSION
     Dosage: 50/12.5 MG DAILY
     Route: 048
     Dates: start: 20010101
  2. NEXIUM [Suspect]
     Route: 048
     Dates: start: 20110919
  3. LOSARTAN POTASSIUM [Concomitant]
     Indication: HYPERTENSION
     Route: 048
     Dates: start: 20010101
  4. ALPRAZOLAM [Concomitant]
     Indication: ANXIETY DISORDER
     Dosage: DAILY
     Route: 048
  5. SERTRALINE CHLORIDE [Concomitant]
     Indication: ANXIETY DISORDER
     Dosage: DAILY
     Route: 048
  6. NEXIUM [Suspect]
     Indication: GASTROOESOPHAGEAL REFLUX DISEASE
     Route: 048
     Dates: start: 20080101, end: 20110913

REACTIONS (5)
  - OSTEOARTHRITIS [None]
  - MALAISE [None]
  - DRUG DOSE OMISSION [None]
  - GASTROOESOPHAGEAL REFLUX DISEASE [None]
  - PLATELET COUNT INCREASED [None]
